FAERS Safety Report 7816929-8 (Version None)
Quarter: 2011Q4

REPORT INFORMATION
  Report Type: 
  Country: None (occurrence: None)
  Receive Date: 20111017
  Receipt Date: 20111003
  Transmission Date: 20120403
  Serious: Yes (Hospitalization)
  Sender: FDA-Public Use
  Company Number: FR-CELGENEUS-056-50794-11100321

PATIENT
  Sex: Male

DRUGS (5)
  1. TIENAM [Suspect]
     Route: 041
     Dates: start: 20110406
  2. AMIKACIN [Suspect]
     Route: 041
     Dates: start: 20110406
  3. VIDAZA [Suspect]
     Dosage: 75 MILLIGRAM/SQ. METER
     Route: 058
     Dates: start: 20100322, end: 20100330
  4. ROCEPHIN [Suspect]
     Route: 065
     Dates: start: 20100403, end: 20100405
  5. CIPROFLOXACIN [Suspect]
     Route: 065
     Dates: start: 20110403, end: 20110405

REACTIONS (1)
  - PANCREATITIS ACUTE [None]
